FAERS Safety Report 6044069-X (Version None)
Quarter: 2009Q1

REPORT INFORMATION
  Report Type: 
  Country: None (occurrence: None)
  Receive Date: 20090120
  Receipt Date: 20090116
  Transmission Date: 20090719
  Serious: Yes (Other)
  Sender: FDA-Public Use
  Company Number: A0763990A

PATIENT
  Age: 10 Year
  Sex: Male

DRUGS (2)
  1. VENTOLIN [Suspect]
     Indication: DRUG USE FOR UNKNOWN INDICATION
     Dosage: 2%DS FOUR TIMES PER DAY
     Route: 065
  2. STRATTERA [Suspect]
     Route: 065

REACTIONS (5)
  - AGITATION [None]
  - CRYING [None]
  - MANIA [None]
  - MOOD SWINGS [None]
  - PSYCHOMOTOR HYPERACTIVITY [None]
